FAERS Safety Report 5947739-4 (Version None)
Quarter: 2008Q4

REPORT INFORMATION
  Report Type: 
  Country: None (occurrence: None)
  Receive Date: 20081110
  Receipt Date: 20081110
  Transmission Date: 20090506
  Serious: Yes (Other)
  Sender: FDA-Public Use
  Company Number: None

PATIENT
  Age: 63 Year
  Sex: Male
  Weight: 79.3795 kg

DRUGS (3)
  1. VICKS FORMULA 44 [Suspect]
     Indication: COUGH
     Dosage: 1 TABLESPOON EVERY 4 HRS PO
     Route: 048
     Dates: start: 20081015, end: 20081024
  2. VICKS FORMULA 44 [Suspect]
     Indication: NASOPHARYNGITIS
     Dosage: 1 TABLESPOON EVERY 4 HRS PO
     Route: 048
     Dates: start: 20081015, end: 20081024
  3. COUMADIN [Suspect]

REACTIONS (3)
  - DRUG LEVEL INCREASED [None]
  - MEDICATION ERROR [None]
  - PLASMA VISCOSITY DECREASED [None]
